FAERS Safety Report 10452409 (Version 1)
Quarter: 2014Q3

REPORT INFORMATION
  Report Type: Spontaneous
  Country: US (occurrence: None)
  Receive Date: 20140912
  Receipt Date: 20140912
  Transmission Date: 20150326
  Serious: No
  Sender: FDA-Public Use
  Company Number: None

PATIENT

DRUGS (1)
  1. WARTSTICK [Suspect]
     Active Substance: SALICYLIC ACID
     Route: 061

REACTIONS (3)
  - Circumstance or information capable of leading to medication error [None]
  - Product quality issue [None]
  - Product packaging confusion [None]
